FAERS Safety Report 4674244-8 (Version None)
Quarter: 2005Q2

REPORT INFORMATION
  Report Type: 
  Country: None (occurrence: None)
  Receive Date: 20050524
  Receipt Date: 20050506
  Transmission Date: 20051028
  Serious: Yes (Other)
  Sender: FDA-Public Use
  Company Number: USA050597449

PATIENT
  Age: 10 Year
  Sex: Male

DRUGS (3)
  1. STRATTERA [Suspect]
     Dosage: 40 MG
     Dates: start: 20040101
  2. LEXAPRO [Concomitant]
  3. ALLEGRA [Concomitant]

REACTIONS (1)
  - CONVULSION [None]
